FAERS Safety Report 19399991 (Version 2)
Quarter: 2021Q4

REPORT INFORMATION
  Report Type: Report from Study
  Country: BR (occurrence: BR)
  Receive Date: 20210610
  Receipt Date: 20211103
  Transmission Date: 20220304
  Serious: Yes (Other)
  Sender: FDA-Public Use
  Company Number: BR-NOVARTISPH-NVSC2021BR066835

PATIENT
  Age: 67 Year
  Sex: Female

DRUGS (8)
  1. KISQALI [Suspect]
     Active Substance: RIBOCICLIB
     Indication: Product used for unknown indication
     Dosage: 3 DF, QD (PER DAY USED 7 DAYS)
     Route: 065
     Dates: start: 20210303, end: 20211020
  2. KISQALI [Suspect]
     Active Substance: RIBOCICLIB
     Dosage: 3 DF, QD
     Route: 065
     Dates: start: 20210303, end: 20211020
  3. KISQALI [Suspect]
     Active Substance: RIBOCICLIB
     Dosage: 3 DF, QD
     Route: 065
     Dates: start: 20210303, end: 20211020
  4. FEMARA [Suspect]
     Active Substance: LETROZOLE
     Indication: Product used for unknown indication
     Dosage: UNK
     Route: 065
     Dates: start: 2017
  5. FASLODEX [Concomitant]
     Active Substance: FULVESTRANT
     Indication: Product used for unknown indication
     Dosage: UNK UNK, Q2W (EVERY 15 DAYS)
     Route: 065
  6. FASLODEX [Concomitant]
     Active Substance: FULVESTRANT
     Dosage: UNK UNK, QMO
     Route: 065
  7. AVASTIN [Concomitant]
     Active Substance: BEVACIZUMAB
     Indication: Product used for unknown indication
     Dosage: UNK
     Route: 065
  8. TAXOL [Concomitant]
     Active Substance: PACLITAXEL
     Indication: Product used for unknown indication
     Dosage: UNK
     Route: 065

REACTIONS (9)
  - Metastases to bone [Recovering/Resolving]
  - Metastases to stomach [Not Recovered/Not Resolved]
  - Frequent bowel movements [Unknown]
  - Eating disorder [Unknown]
  - Decreased appetite [Unknown]
  - Weight decreased [Unknown]
  - Blood creatinine increased [Unknown]
  - Neutrophil count decreased [Unknown]
  - Drug ineffective [Unknown]

NARRATIVE: CASE EVENT DATE: 20210317
